FAERS Safety Report 8031345-4 (Version None)
Quarter: 2012Q1

REPORT INFORMATION
  Report Type: 
  Country: None (occurrence: None)
  Receive Date: 20120109
  Receipt Date: 20120104
  Transmission Date: 20120608
  Serious: Yes (Hospitalization)
  Sender: FDA-Public Use
  Company Number: NL-GLAXOSMITHKLINE-B0774132A

PATIENT
  Sex: Female

DRUGS (3)
  1. FORADIL [Suspect]
     Indication: PRODUCT USED FOR UNKNOWN INDICATION
     Dosage: 12MCG PER DAY
     Route: 055
     Dates: start: 20111017, end: 20111031
  2. FLUTICASONE PROPIONATE/SALMETEROL [Suspect]
     Indication: PRODUCT USED FOR UNKNOWN INDICATION
     Route: 055
     Dates: start: 20090101, end: 20111017
  3. SPIRIVA [Concomitant]
     Dosage: 18MCG PER DAY
     Route: 055
     Dates: start: 20111101

REACTIONS (3)
  - ARRHYTHMIA [None]
  - TREMOR [None]
  - PALPITATIONS [None]
